FAERS Safety Report 6815444-8 (Version None)
Quarter: 2010Q3

REPORT INFORMATION
  Report Type: 
  Country: None (occurrence: None)
  Receive Date: 20100702
  Receipt Date: 20100628
  Transmission Date: 20110219
  Serious: Yes (Hospitalization)
  Sender: FDA-Public Use
  Company Number: PL-ABBOTT-08P-129-0458114-00

PATIENT
  Sex: Female
  Weight: 47 kg

DRUGS (3)
  1. HUMIRA [Suspect]
     Indication: CROHN'S DISEASE
     Route: 058
     Dates: start: 20080507, end: 20080604
  2. SULFASALAZINE [Concomitant]
     Indication: CROHN'S DISEASE
     Route: 048
     Dates: start: 20071220
  3. INFLIXIMAB [Concomitant]
     Indication: CROHN'S DISEASE
     Route: 042
     Dates: start: 20060819, end: 20060901

REACTIONS (1)
  - BARTHOLIN'S ABSCESS [None]
